FAERS Safety Report 20551378 (Version 1)
Quarter: 2022Q1

REPORT INFORMATION
  Report Type: Spontaneous
  Country: HR (occurrence: HR)
  Receive Date: 20220304
  Receipt Date: 20220304
  Transmission Date: 20220423
  Serious: Yes (Other)
  Sender: FDA-Public Use
  Company Number: None

PATIENT
  Age: 78 Year
  Sex: Male

DRUGS (1)
  1. DONEPEZIL [Suspect]
     Active Substance: DONEPEZIL
     Indication: Dementia Alzheimer^s type
     Dosage: DONEPEZIL PLIVA,UNIT DOSE:280MG,ADDITIONAL INFORMATION:ADR IS ADEQUATELY LABELLED:?OVERDOSE: NO?BRAD
     Route: 048
     Dates: start: 20210802, end: 20210802

REACTIONS (3)
  - Bradycardia [Unknown]
  - Overdose [Unknown]
  - Orbital myositis [Unknown]

NARRATIVE: CASE EVENT DATE: 20210802
